FAERS Safety Report 4976912-7 (Version None)
Quarter: 2006Q2

REPORT INFORMATION
  Report Type: 
  Country: None (occurrence: None)
  Receive Date: 20060413
  Receipt Date: 20060404
  Transmission Date: 20061013
  Serious: Yes (Death)
  Sender: FDA-Public Use
  Company Number: 2006S1000058

PATIENT
  Age: 98 Year
  Sex: Female

DRUGS (2)
  1. CUBICIN [Suspect]
  2. TIGECYCLINE [Concomitant]

REACTIONS (1)
  - CARDIAC FAILURE [None]
